FAERS Safety Report 4357824-9 (Version None)
Quarter: 2004Q2

REPORT INFORMATION
  Report Type: 
  Country: None (occurrence: None)
  Receive Date: 20040512
  Receipt Date: 20040428
  Transmission Date: 20050107
  Serious: Yes (Hospitalization)
  Sender: FDA-Public Use
  Company Number: HQWYE584526APR04

PATIENT
  Age: 69 Year
  Sex: Male
  Weight: 125.3 kg

DRUGS (4)
  1. MYLOTARG [Suspect]
     Indication: ACUTE MYELOID LEUKAEMIA
     Dosage: 21 MG 1X PER 1 DAY, INTRAVENOUS
     Route: 042
     Dates: start: 20040421, end: 20040421
  2. DIPHENHYDRAMINE HCL [Concomitant]
  3. ACETAMINOPHEN [Concomitant]
  4. SOLU-MEDROL [Concomitant]

REACTIONS (11)
  - CHILLS [None]
  - DRY MOUTH [None]
  - DYSPNOEA [None]
  - FAILURE TO THRIVE [None]
  - FATIGUE [None]
  - FEELING ABNORMAL [None]
  - HAEMATOCRIT DECREASED [None]
  - HAEMOGLOBIN DECREASED [None]
  - HEADACHE [None]
  - RED BLOOD CELL COUNT DECREASED [None]
  - WHITE BLOOD CELL COUNT DECREASED [None]
